FAERS Safety Report 10507761 (Version 1)
Quarter: 2014Q3

REPORT INFORMATION
  Report Type: Spontaneous
  Country: US (occurrence: None)
  Receive Date: 20140915
  Receipt Date: 20140915
  Transmission Date: 20150326
  Serious: Yes (Other)
  Sender: FDA-Public Use
  Company Number: 2013-US-001877

PATIENT
  Age: 73 Year
  Sex: Female
  Weight: 63.9 kg

DRUGS (12)
  1. BYSTOLIC [Concomitant]
     Active Substance: NEBIVOLOL HYDROCHLORIDE
  2. AMLODIPINE (AMLODIPINE BESILATE) [Concomitant]
  3. VITAMIN D3 [Concomitant]
     Active Substance: CHOLECALCIFEROL
  4. COQ10 (UBIDECARENONE) [Concomitant]
     Active Substance: UBIDECARENONE
  5. LEVOTHYROXINE [Concomitant]
     Active Substance: LEVOTHYROXINE
  6. CLONAZEPAM. [Concomitant]
     Active Substance: CLONAZEPAM
  7. VITAMIN B 12 (VITAMIN B NOS) [Concomitant]
  8. SEROQUEL [Concomitant]
     Active Substance: QUETIAPINE FUMARATE
  9. LIPITOR [Concomitant]
     Active Substance: ATORVASTATIN CALCIUM
  10. XYREM [Suspect]
     Active Substance: SODIUM OXYBATE
     Indication: INSOMNIA
     Route: 048
     Dates: start: 20070413
  11. FISH OIL [Concomitant]
     Active Substance: FISH OIL
  12. GLUCOSAMINE (GLUCOSAMINE SULFATE) [Concomitant]

REACTIONS (2)
  - Sleep apnoea syndrome [None]
  - Cough [None]

NARRATIVE: CASE EVENT DATE: 201307
